FAERS Safety Report 15083224 (Version 3)
Quarter: 2018Q4

REPORT INFORMATION
  Report Type: Spontaneous
  Country: JP (occurrence: JP)
  Receive Date: 20180628
  Receipt Date: 20181001
  Transmission Date: 20190204
  Serious: Yes (Death, Other)
  Sender: FDA-Public Use
  Company Number: JP-ALLERGAN-1832635US

PATIENT
  Age: 74 Year
  Sex: Male

DRUGS (3)
  1. BOTOX [Suspect]
     Active Substance: ONABOTULINUMTOXINA
     Indication: HEMIPLEGIA
     Dosage: 240 IU, SINGLE
     Route: 030
     Dates: start: 20170316, end: 20170316
  2. BOTOX [Suspect]
     Active Substance: ONABOTULINUMTOXINA
     Indication: MUSCLE SPASMS
     Dosage: 240 IU, SINGLE
     Route: 030
     Dates: start: 20170703, end: 20170703
  3. BOTOX [Suspect]
     Active Substance: ONABOTULINUMTOXINA
     Indication: CEREBRAL INFARCTION
     Dosage: 240 IU, SINGLE
     Route: 030
     Dates: start: 20171004, end: 20171004

REACTIONS (6)
  - Acute kidney injury [Fatal]
  - Diarrhoea [Unknown]
  - Anuria [Unknown]
  - Hyperthermia [Unknown]
  - Cardiac failure [Fatal]
  - Nephritis [Fatal]

NARRATIVE: CASE EVENT DATE: 20180611
